FAERS Safety Report 13170736 (Version 1)
Quarter: 2017Q1

REPORT INFORMATION
  Report Type: Spontaneous
  Country: FR (occurrence: FR)
  Receive Date: 20170201
  Receipt Date: 20170201
  Transmission Date: 20170428
  Serious: Yes (Disabling, Other)
  Sender: FDA-Public Use
  Company Number: FR-ACCORD-047919

PATIENT
  Age: 71 Year
  Sex: Male

DRUGS (5)
  1. ZOPHREN [Concomitant]
     Active Substance: ONDANSETRON
  2. CISPLATIN ACCORD [Suspect]
     Active Substance: CISPLATIN
     Indication: PLEURAL MESOTHELIOMA MALIGNANT
     Dosage: 138 MG, 1 IN 1 CYCLE
     Route: 042
     Dates: start: 20160708, end: 20160910
  3. ALIMTA [Suspect]
     Active Substance: PEMETREXED DISODIUM
     Indication: PLEURAL MESOTHELIOMA MALIGNANT
     Dosage: 1 CYCLE?STRENGTH: 500 MG
     Route: 042
     Dates: start: 20160708, end: 20160910
  4. SOLU-MEDROL [Concomitant]
     Active Substance: METHYLPREDNISOLONE SODIUM SUCCINATE
  5. APREPITANT. [Concomitant]
     Active Substance: APREPITANT

REACTIONS (1)
  - Cardiomyopathy [Recovered/Resolved]

NARRATIVE: CASE EVENT DATE: 20170103
